FAERS Safety Report 15903721 (Version 1)
Quarter: 2019Q1

REPORT INFORMATION
  Report Type: Spontaneous
  Country: FR (occurrence: FR)
  Receive Date: 20190203
  Receipt Date: 20190203
  Transmission Date: 20190417
  Serious: Yes (Other)
  Sender: FDA-Public Use
  Company Number: FR-CELLTRION INC.-2019FR018326

PATIENT

DRUGS (4)
  1. RITUXIMAB (UNKNOWN) [Suspect]
     Active Substance: RITUXIMAB
     Indication: NEOPLASM
     Dosage: 500 MG/M2 ON DAY 1 OF CYCLE 2 FOR A MAXIMUM OF SIX CYCLES (28 DAYS/CYCLE)
     Route: 065
  2. FLUDARABINE [Suspect]
     Active Substance: FLUDARABINE PHOSPHATE
     Indication: NEOPLASM
     Dosage: 40 MG/M2/DAY
     Route: 065
  3. RITUXIMAB (UNKNOWN) [Suspect]
     Active Substance: RITUXIMAB
     Dosage: 375 MG/M2 ON DAY 0 OF CYCLE 1
     Route: 065
  4. ENDOXAN                            /00021102/ [Suspect]
     Active Substance: CYCLOPHOSPHAMIDE
     Indication: NEOPLASM
     Dosage: 250 MG/M2/DAY FOR THE FIRST 3 DAYS OF EACH CYCLE
     Route: 065

REACTIONS (1)
  - Haematological malignancy [Unknown]
